FAERS Safety Report 7287992-0 (Version None)
Quarter: 2011Q1

REPORT INFORMATION
  Report Type: 
  Country: None (occurrence: None)
  Receive Date: 20110211
  Receipt Date: 20110128
  Transmission Date: 20110831
  Serious: Yes (Other)
  Sender: FDA-Public Use
  Company Number: PHNU2003DE02746

PATIENT
  Sex: Female

DRUGS (12)
  1. STILLACOR [Suspect]
     Dosage: LOW DOSAGE
  2. RIOPAN [Concomitant]
     Dosage: UNK
  3. DIOVAN [Suspect]
     Dosage: 60 MG, QD
     Dates: end: 20101201
  4. DIGITALIS TAB [Concomitant]
  5. PIRETANIDE [Suspect]
     Dosage: LOW DOSAGE
  6. MARCUMAR [Concomitant]
     Dosage: LOW DOSAGE
  7. DIOVAN [Suspect]
     Dosage: 40 MG, BID
     Dates: start: 20021101, end: 20060301
  8. DIOVAN [Suspect]
     Dosage: 80 MG, BID
     Dates: start: 20060301
  9. DIOVAN [Suspect]
     Dosage: 120 MG, QD (80 MG IN THE MORNING AND 40 MG IN THE EVENING)
     Dates: start: 20101201
  10. EUTHYROX [Concomitant]
     Dosage: LOW DOSAGE
  11. DIOVAN [Suspect]
     Dosage: 0.5 DF, QD
     Route: 048
     Dates: start: 19970101, end: 20021101
  12. DIOVAN [Suspect]
     Dosage: 40 MG, QD
     Route: 048
     Dates: start: 20021101, end: 20021101

REACTIONS (44)
  - LEUKOCYTOCLASTIC VASCULITIS [None]
  - EMPHYSEMA [None]
  - ANTINUCLEAR ANTIBODY POSITIVE [None]
  - EYE IRRITATION [None]
  - HYPERHIDROSIS [None]
  - APHTHOUS STOMATITIS [None]
  - RENAL IMPAIRMENT [None]
  - GAIT DISTURBANCE [None]
  - THROMBOCYTOPENIC PURPURA [None]
  - OESOPHAGEAL PAIN [None]
  - GAMMA-GLUTAMYLTRANSFERASE [None]
  - HAEMOGLOBIN DECREASED [None]
  - RED BLOOD CELL COUNT DECREASED [None]
  - CHRONIC OBSTRUCTIVE PULMONARY DISEASE [None]
  - PRURITUS [None]
  - DIARRHOEA [None]
  - LACTOSE INTOLERANCE [None]
  - LYMPHOPENIA [None]
  - RASH [None]
  - BURNING SENSATION MUCOSAL [None]
  - SKIN BURNING SENSATION [None]
  - BURNING SENSATION [None]
  - ASTHENIA [None]
  - THROMBOCYTOPENIA [None]
  - NAUSEA [None]
  - SJOGREN'S SYNDROME [None]
  - BRONCHITIS [None]
  - LEUKOPENIA [None]
  - PURPURA [None]
  - DYSPHAGIA [None]
  - ERYTHEMA [None]
  - BLOOD PRESSURE DIASTOLIC DECREASED [None]
  - ANAEMIA [None]
  - SENSATION OF FOREIGN BODY [None]
  - FEELING COLD [None]
  - ORAL DISCOMFORT [None]
  - CYSTITIS [None]
  - HEREDITARY FRUCTOSE INTOLERANCE [None]
  - ABDOMINAL PAIN UPPER [None]
  - ALOPECIA [None]
  - BLOOD PRESSURE INCREASED [None]
  - BLOOD UREA INCREASED [None]
  - CHROMATURIA [None]
  - DIZZINESS [None]
